FAERS Safety Report 11920204 (Version 1)
Quarter: 2016Q1

REPORT INFORMATION
  Report Type: Spontaneous
  Country: CA (occurrence: CA)
  Receive Date: 20160115
  Receipt Date: 20160115
  Transmission Date: 20160526
  Serious: Yes (Life-Threatening)
  Sender: FDA-Public Use
  Company Number: CA-TEVA-625261ACC

PATIENT
  Age: 47 Year
  Sex: Male
  Weight: 86.26 kg

DRUGS (4)
  1. CLAVULIN [Concomitant]
     Active Substance: AMOXICILLIN\CLAVULANIC ACID
  2. FLOVENT [Concomitant]
     Active Substance: FLUTICASONE PROPIONATE
  3. VENTOLIN [Concomitant]
     Active Substance: ALBUTEROL SULFATE
  4. RATIO-ACLAVULANATE [Suspect]
     Active Substance: AMOXICILLIN\CLAVULANATE POTASSIUM
     Indication: PNEUMONIA BACTERIAL
     Dosage: 2 DOSAGE FORMS DAILY;
     Route: 048

REACTIONS (7)
  - Bilirubinuria [Recovered/Resolved]
  - Chromaturia [Recovered/Resolved]
  - Nausea [Recovered/Resolved]
  - Ocular icterus [Recovered/Resolved]
  - Vomiting [Recovered/Resolved]
  - Epigastric discomfort [Recovered/Resolved]
  - Hyperbilirubinaemia [Recovered/Resolved]
